FAERS Safety Report 4783581-8 (Version None)
Quarter: 2005Q3

REPORT INFORMATION
  Report Type: 
  Country: None (occurrence: None)
  Receive Date: 20050928
  Receipt Date: 20050912
  Transmission Date: 20060218
  Serious: Yes (Hospitalization, Other)
  Sender: FDA-Public Use
  Company Number: GBS050717935

PATIENT
  Age: 32 Year
  Sex: Female

DRUGS (10)
  1. FLUOXETINE [Suspect]
     Dosage: 40 MG DAY
  2. OLANZAPINE [Suspect]
     Indication: SCHIZOPHRENIA, PARANOID TYPE
     Dosage: 15 MG IN THE EVENING
  3. SULPIRIDE [Concomitant]
  4. CLOZAPINE [Concomitant]
  5. FLUPENTIXOL [Concomitant]
  6. VENLAFAXINE [Suspect]
  7. RISPERIDONE [Concomitant]
  8. ZOPICLONE [Concomitant]
  9. CITALOPRAM [Concomitant]
  10. CLONAZEPAM [Concomitant]

REACTIONS (19)
  - CONDITION AGGRAVATED [None]
  - CONFUSIONAL STATE [None]
  - DEPRESSION [None]
  - DISEASE RECURRENCE [None]
  - DISORIENTATION [None]
  - DIZZINESS [None]
  - DRUG INTERACTION [None]
  - FATIGUE [None]
  - GRAND MAL CONVULSION [None]
  - HALLUCINATION, AUDITORY [None]
  - HEADACHE [None]
  - MENTAL IMPAIRMENT [None]
  - ORTHOSTATIC HYPOTENSION [None]
  - PERSECUTORY DELUSION [None]
  - POSTICTAL STATE [None]
  - SALIVARY HYPERSECRETION [None]
  - SCHIZOPHRENIA, PARANOID TYPE [None]
  - SYNCOPE VASOVAGAL [None]
  - URINARY INCONTINENCE [None]
